FAERS Safety Report 5805707-7 (Version None)
Quarter: 2008Q3

REPORT INFORMATION
  Report Type: 
  Country: None (occurrence: None)
  Receive Date: 20080710
  Receipt Date: 20080703
  Transmission Date: 20090109
  Serious: Yes (Other)
  Sender: FDA-Public Use
  Company Number: US-BAYER-200825824NA

PATIENT
  Age: 19 Year
  Sex: Female
  Weight: 54 kg

DRUGS (1)
  1. YAZ [Suspect]
     Indication: CONTRACEPTION

REACTIONS (11)
  - AFFECT LABILITY [None]
  - BREAST PAIN [None]
  - DEPRESSION [None]
  - FEAR [None]
  - MENSTRUAL DISORDER [None]
  - MOOD SWINGS [None]
  - MUSCLE SPASMS [None]
  - NO ADVERSE EVENT [None]
  - SLEEP DISORDER [None]
  - SUICIDAL IDEATION [None]
  - VAGINAL HAEMORRHAGE [None]
